FAERS Safety Report 5079699-5 (Version None)
Quarter: 2006Q3

REPORT INFORMATION
  Report Type: 
  Country: None (occurrence: None)
  Receive Date: 20060808
  Receipt Date: 20060725
  Transmission Date: 20061208
  Serious: Yes (Life-Threatening)
  Sender: FDA-Public Use
  Company Number: R301621-315-USA

PATIENT
  Age: 68 Year
  Sex: Male

DRUGS (8)
  1. ACIPHEX [Suspect]
     Indication: DYSPEPSIA
     Dosage: 10 MG, 1 IN 1 D, ORAL
     Route: 048
     Dates: start: 20060509
  2. METOLAZONE [Concomitant]
  3. BUPROPION HCL [Concomitant]
  4. LIPITOR [Concomitant]
  5. TRICOR [Concomitant]
  6. INSULIN - REGULAR (INSULIN) [Concomitant]
  7. NPH INSULIN [Concomitant]
  8. PREVACID [Concomitant]

REACTIONS (3)
  - BLOOD GLUCOSE DECREASED [None]
  - LOSS OF CONSCIOUSNESS [None]
  - SLEEP ATTACKS [None]
